FAERS Safety Report 9025092 (Version 2)
Quarter: 2013Q1

REPORT INFORMATION
  Report Type: Report from Study
  Country: DE (occurrence: DE)
  Receive Date: 20130121
  Receipt Date: 20130208
  Transmission Date: 20140127
  Serious: Yes (Hospitalization)
  Sender: FDA-Public Use
  Company Number: DE-BAYER-2012-082888

PATIENT
  Age: 65 Year
  Sex: Female
  Weight: 73 kg

DRUGS (13)
  1. REGORAFENIB [Suspect]
     Indication: COLON CANCER METASTATIC
     Dosage: 160 MG, QD
     Route: 048
     Dates: start: 20120808, end: 20120813
  2. REGORAFENIB [Suspect]
     Indication: COLON CANCER METASTATIC
     Dosage: DAILY DOSE 160 MG
     Route: 048
     Dates: start: 20120808, end: 20120813
  3. REGORAFENIB [Suspect]
     Indication: COLON CANCER METASTATIC
     Dosage: DAILY DOSE 160 MG
     Route: 048
     Dates: start: 20120808, end: 20120813
  4. THEOPHYLLINE [Concomitant]
     Dosage: 300 MG, BID
     Route: 048
     Dates: start: 1965
  5. BLOPRESS [Concomitant]
     Dosage: 2 MG, ONCE
     Dates: start: 1994
  6. PANTOPRAZOLE [Concomitant]
     Dosage: 40 MG, ONCE
     Route: 048
     Dates: start: 1965
  7. ULTRALAN [FLUOCORTOLONE] [Concomitant]
     Dosage: 5 MG, BID
     Route: 048
     Dates: start: 1965
  8. GLUCOPHAGE [Concomitant]
     Dosage: 500 IE, QID
     Route: 058
     Dates: start: 1985
  9. FLUTICASONE PROPIONATE W/SALMETEROL XINAFOATE [Concomitant]
     Dosage: 25 MG, ONCE
     Route: 048
     Dates: start: 1965
  10. FLUTICASONE PROPIONATE W/SALMETEROL XINAFOATE [Concomitant]
     Dosage: 25 MG, ONCE
     Route: 048
     Dates: start: 1965
  11. SALBUHEXAL [Concomitant]
     Dosage: UNK UNK, PRN
     Route: 055
     Dates: start: 1965
  12. CEFUROXIM [Concomitant]
     Dosage: 250 MG, BID
     Route: 048
     Dates: start: 20120801, end: 20120806
  13. LASIX [Concomitant]
     Dosage: 40 MG, BID
     Route: 048
     Dates: start: 20120804

REACTIONS (1)
  - Dehydration [Recovered/Resolved]
